FAERS Safety Report 16287327 (Version 5)
Quarter: 2020Q2

REPORT INFORMATION
  Report Type: Report from Study
  Country: US (occurrence: US)
  Receive Date: 20190508
  Receipt Date: 20200604
  Transmission Date: 20200713
  Serious: Yes (Hospitalization, Other)
  Sender: FDA-Public Use
  Company Number: US-ACTELION-A-NJ2019-190032

PATIENT
  Age: 54 Year
  Sex: Female
  Weight: 108.84 kg

DRUGS (1)
  1. OPSUMIT [Suspect]
     Active Substance: MACITENTAN
     Indication: PULMONARY ARTERIAL HYPERTENSION
     Dosage: 10 MG, QD
     Route: 048

REACTIONS (12)
  - Stent placement [Unknown]
  - Tendon injury [Unknown]
  - Head injury [Unknown]
  - Myocardial infarction [Unknown]
  - Limb injury [Unknown]
  - Syncope [Unknown]
  - Limb operation [Unknown]
  - Blood pressure fluctuation [Unknown]
  - Dizziness [Unknown]
  - Fall [Unknown]
  - Abscess [Unknown]
  - Unevaluable event [Unknown]

NARRATIVE: CASE EVENT DATE: 20190311
